FAERS Safety Report 8504486-2 (Version None)
Quarter: 2012Q3

REPORT INFORMATION
  Report Type: 
  Country: None (occurrence: None)
  Receive Date: 20120711
  Receipt Date: 20120705
  Transmission Date: 20120928
  Serious: Yes (Other)
  Sender: FDA-Public Use
  Company Number: JP-PFIZER INC-2012158837

PATIENT
  Age: 51 Year
  Sex: Female

DRUGS (7)
  1. ZOLOFT [Suspect]
     Dosage: 50 MG, UNK
     Route: 048
     Dates: start: 20110901, end: 20111001
  2. ZOLOFT [Suspect]
     Dosage: 25 MG, UNK
     Route: 048
     Dates: end: 20100201
  3. ZOLOFT [Suspect]
     Dosage: 25 MG, UNK
     Route: 048
     Dates: start: 20100801, end: 20110901
  4. ZOLOFT [Suspect]
     Indication: DEPRESSION
     Dosage: 50 MG, UNK
     Route: 048
  5. ZOLOFT [Suspect]
     Dosage: 12.5 MG, UNK
     Route: 048
     Dates: start: 20100201, end: 20100801
  6. ZOLOFT [Suspect]
     Dosage: 37.5 MG, UNK
     Route: 048
     Dates: start: 20091001
  7. ZOLOFT [Suspect]
     Dosage: 25 MG, UNK
     Route: 048
     Dates: start: 20111001, end: 20120601

REACTIONS (5)
  - DYSARTHRIA [None]
  - MALAISE [None]
  - HYPERREFLEXIA [None]
  - DYSKINESIA [None]
  - STRESS [None]
